FAERS Safety Report 8301279-6 (Version None)
Quarter: 2012Q2

REPORT INFORMATION
  Report Type: 
  Country: None (occurrence: None)
  Receive Date: 20120420
  Receipt Date: 20120413
  Transmission Date: 20120825
  Serious: Yes (Hospitalization)
  Sender: FDA-Public Use
  Company Number: JP-EISAI INC-E2090-02083-SPO-JP

PATIENT
  Age: 37 Year
  Sex: Female

DRUGS (3)
  1. SLOWHEIM [Concomitant]
  2. ACETAMINOPHEN [Concomitant]
  3. ZONISAMIDE [Suspect]
     Dosage: 300 MG DAILY
     Route: 048

REACTIONS (1)
  - STEVENS-JOHNSON SYNDROME [None]
